FAERS Safety Report 9101751 (Version 1)
Quarter: 2013Q1

REPORT INFORMATION
  Report Type: Spontaneous
  Country: JP (occurrence: JP)
  Receive Date: 20130218
  Receipt Date: 20130218
  Transmission Date: 20140127
  Serious: Yes (Other)
  Sender: FDA-Public Use
  Company Number: JP-ELI_LILLY_AND_COMPANY-JP201302003459

PATIENT
  Age: 77 Year
  Sex: Female

DRUGS (2)
  1. GEMCITABINE HYDROCHLORIDE [Suspect]
     Indication: LUNG NEOPLASM MALIGNANT
     Route: 042
  2. IRINOTECAN [Concomitant]
     Indication: LUNG NEOPLASM MALIGNANT

REACTIONS (5)
  - Inappropriate antidiuretic hormone secretion [Unknown]
  - Cerebellar infarction [Unknown]
  - Interstitial lung disease [Unknown]
  - Hypercalcaemia [Unknown]
  - Infection [Unknown]
